FAERS Safety Report 18207014 (Version 1)
Quarter: 2020Q3

REPORT INFORMATION
  Report Type: Spontaneous
  Country: CA (occurrence: CA)
  Receive Date: 20200828
  Receipt Date: 20200828
  Transmission Date: 20201103
  Serious: Yes (Other)
  Sender: FDA-Public Use
  Company Number: CA-BAYER-2020-175396

PATIENT
  Age: 55 Year
  Sex: Male

DRUGS (1)
  1. ALEVE [Suspect]
     Active Substance: NAPROXEN SODIUM
     Indication: BACK PAIN
     Dosage: 500 MG, BID

REACTIONS (5)
  - Proteinuria [Unknown]
  - Rash [Unknown]
  - Vasculitis [Unknown]
  - Haematuria [Unknown]
  - Acute kidney injury [Unknown]
